FAERS Safety Report 12006107 (Version 1)
Quarter: 2016Q1

REPORT INFORMATION
  Report Type: Report from Study
  Country: BR (occurrence: BR)
  Receive Date: 20160205
  Receipt Date: 20160205
  Transmission Date: 20160526
  Serious: Yes (Hospitalization, Other)
  Sender: FDA-Public Use
  Company Number: BR-ROCHE-1704883

PATIENT
  Age: 14 Year
  Sex: Male
  Weight: 27 kg

DRUGS (6)
  1. AD-TIL [Concomitant]
     Dosage: 3 DROPS
     Route: 065
  2. CREON [Concomitant]
     Active Substance: PANCRELIPASE AMYLASE\PANCRELIPASE LIPASE\PANCRELIPASE PROTEASE
     Indication: PANCREATIC DISORDER
  3. AZITHROMYCIN ANHYDROUS. [Concomitant]
     Active Substance: AZITHROMYCIN ANHYDROUS
     Route: 065
  4. PULMOZYME [Suspect]
     Active Substance: DORNASE ALFA
     Indication: CYSTIC FIBROSIS
     Route: 065
     Dates: start: 201108
  5. TOBRAMYCIN. [Concomitant]
     Active Substance: TOBRAMYCIN
  6. OMEPRAZOLE. [Concomitant]
     Active Substance: OMEPRAZOLE
     Indication: GASTRIC DISORDER
     Dosage: IN THE MORNING
     Route: 065

REACTIONS (3)
  - Feeding disorder [Unknown]
  - Lung disorder [Unknown]
  - Pneumothorax [Not Recovered/Not Resolved]
